FAERS Safety Report 5532917-9 (Version None)
Quarter: 2007Q4

REPORT INFORMATION
  Report Type: 
  Country: None (occurrence: None)
  Receive Date: 20071120
  Receipt Date: 20070806
  Transmission Date: 20080405
  Serious: No
  Sender: FDA-Public Use
  Company Number: WAES 0706USA03852

PATIENT
  Age: 76 Year
  Sex: Female
  Weight: 66.2252 kg

DRUGS (11)
  1. JANUVIA [Suspect]
     Indication: BLOOD GLUCOSE
     Dosage: 100 MG/DAILY/PO
     Route: 048
     Dates: start: 20070301, end: 20070101
  2. ACTONEL [Concomitant]
  3. BENICAR [Concomitant]
  4. CARDURA [Concomitant]
  5. CARTIA XT [Concomitant]
  6. ECOTRIN [Concomitant]
  7. LIPITOR [Concomitant]
  8. PRANDIN [Concomitant]
  9. PREVACID [Concomitant]
  10. ZETIA [Concomitant]
  11. METFORMIN HCL [Concomitant]

REACTIONS (1)
  - CONSTIPATION [None]
